FAERS Safety Report 7493104-0 (Version None)
Quarter: 2011Q2

REPORT INFORMATION
  Report Type: 
  Country: None (occurrence: None)
  Receive Date: 20110520
  Receipt Date: 20110509
  Transmission Date: 20111010
  Serious: Yes (Other)
  Sender: FDA-Public Use
  Company Number: JP-JNJFOC-20110505641

PATIENT

DRUGS (2)
  1. FLUCONAZOLE [Suspect]
     Indication: CANDIDIASIS
     Route: 065
     Dates: start: 20110416, end: 20110502
  2. ITRACONAZOLE [Suspect]
     Indication: CANDIDIASIS
     Route: 048
     Dates: start: 20110502

REACTIONS (3)
  - PYREXIA [None]
  - JAUNDICE [None]
  - LIVER DISORDER [None]
